FAERS Safety Report 5227942-1 (Version None)
Quarter: 2007Q1

REPORT INFORMATION
  Report Type: 
  Country: None (occurrence: None)
  Receive Date: 20061201
  Receipt Date: 20060425
  Transmission Date: 20070707
  Serious: Yes (Hospitalization)
  Sender: FDA-Public Use
  Company Number: 2006-142397-NL

PATIENT
  Age: 42 Year
  Sex: Female
  Weight: 66.7 kg

DRUGS (1)
  1. NUVARING [Suspect]

REACTIONS (1)
  - DEEP VEIN THROMBOSIS [None]
